FAERS Safety Report 4757720-9 (Version None)
Quarter: 2005Q3

REPORT INFORMATION
  Report Type: 
  Country: None (occurrence: None)
  Receive Date: 20050829
  Receipt Date: 20050817
  Transmission Date: 20060218
  Serious: Yes (Other)
  Sender: FDA-Public Use
  Company Number: 2005117656

PATIENT
  Age: 37 Year
  Sex: Female
  Weight: 128.368 kg

DRUGS (4)
  1. DEPO-PROVERA [Suspect]
     Indication: MENORRHAGIA
     Dosage: 150 MG (EVERY 90 DAYS), INTRAMUSCULAR
     Route: 030
  2. DEPO-PROVERA [Suspect]
     Indication: UTERINE LEIOMYOMA
     Dosage: 150 MG (EVERY 90 DAYS), INTRAMUSCULAR
     Route: 030
  3. DEPO-PROVERA [Suspect]
     Indication: MENORRHAGIA
     Dosage: 1000 MG (MOST RECENT ADMINISTRATION), INTRAMUSCULAR
     Route: 030
     Dates: start: 20050816, end: 20050816
  4. DEPO-PROVERA [Suspect]
     Indication: UTERINE LEIOMYOMA
     Dosage: 1000 MG (MOST RECENT ADMINISTRATION), INTRAMUSCULAR
     Route: 030
     Dates: start: 20050816, end: 20050816

REACTIONS (6)
  - COUGH [None]
  - DRUG INEFFECTIVE [None]
  - HYPERTENSION [None]
  - INCORRECT DOSE ADMINISTERED [None]
  - INJECTION SITE PAIN [None]
  - INJECTION SITE SWELLING [None]
